FAERS Safety Report 12797310 (Version 1)
Quarter: 2016Q3

REPORT INFORMATION
  Report Type: Report from Study
  Country: FR (occurrence: FR)
  Receive Date: 20160929
  Receipt Date: 20160929
  Transmission Date: 20161109
  Serious: Yes (Other)
  Sender: FDA-Public Use
  Company Number: FR-ACTELION-A-CH2016-142857

PATIENT
  Age: 37 Year
  Sex: Male
  Weight: 88 kg

DRUGS (1)
  1. VALCHLOR [Suspect]
     Active Substance: MECHLORETHAMINE
     Indication: MYCOSIS FUNGOIDES STAGE I
     Dosage: UNK, 3 TIMES WEEKLY
     Route: 061
     Dates: start: 20160725, end: 20160825

REACTIONS (2)
  - Thermal burn [Recovered/Resolved]
  - Application site erosion [Unknown]

NARRATIVE: CASE EVENT DATE: 20160820
